FAERS Safety Report 18359627 (Version 1)
Quarter: 2020Q4

REPORT INFORMATION
  Report Type: Spontaneous
  Country: PL (occurrence: PL)
  Receive Date: 20201008
  Receipt Date: 20201008
  Transmission Date: 20210114
  Serious: Yes (Other)
  Sender: FDA-Public Use
  Company Number: PL-TEVA-2020-PL-1835593

PATIENT
  Age: 59 Year
  Sex: Female
  Weight: 125 kg

DRUGS (1)
  1. LEVOXAL (LEVOFLOXACIN) [Suspect]
     Active Substance: LEVOFLOXACIN
     Dosage: 1 DOSAGE FORMS,INDICATION FOR USE (ICD 10): J18 PNEUMONIA, ORGANISM UNSPECIFIED
     Route: 048
     Dates: start: 20180302, end: 20180312

REACTIONS (1)
  - Tendon injury [Recovering/Resolving]

NARRATIVE: CASE EVENT DATE: 20180319
